FAERS Safety Report 13996745 (Version 2)
Quarter: 2018Q1

REPORT INFORMATION
  Report Type: Report from Study
  Country: JP (occurrence: JP)
  Receive Date: 20170921
  Receipt Date: 20180302
  Transmission Date: 20180508
  Serious: No
  Sender: FDA-Public Use
  Company Number: JP-VIFOR (INTERNATIONAL) INC.-VIT-2017-09808

PATIENT
  Age: 75 Year
  Sex: Male
  Weight: 53.9 kg

DRUGS (17)
  1. VELPHORO [Suspect]
     Active Substance: FERRIC OXYHYDROXIDE
     Indication: CHRONIC KIDNEY DISEASE
     Dates: start: 20160810, end: 20170417
  2. ATELEC [Concomitant]
     Active Substance: CILNIDIPINE
     Route: 048
  3. DIART [Concomitant]
     Active Substance: AZOSEMIDE
     Route: 048
  4. ROCALTROL [Concomitant]
     Active Substance: CALCITRIOL
     Route: 048
  5. NESP [Concomitant]
     Active Substance: DARBEPOETIN ALFA
     Dates: end: 20161130
  6. VELPHORO [Suspect]
     Active Substance: FERRIC OXYHYDROXIDE
     Indication: HYPERPHOSPHATAEMIA
     Dates: start: 20160629, end: 20160810
  7. NESP [Concomitant]
     Active Substance: DARBEPOETIN ALFA
     Dates: start: 20161130
  8. GASTER [Concomitant]
     Active Substance: FAMOTIDINE
     Indication: PROPHYLAXIS
     Route: 048
  9. TRADJENTA [Concomitant]
     Active Substance: LINAGLIPTIN
     Route: 048
  10. CLOPIDOGREL BISULFATE. [Concomitant]
     Active Substance: CLOPIDOGREL BISULFATE
     Route: 048
  11. VELPHORO [Suspect]
     Active Substance: FERRIC OXYHYDROXIDE
     Indication: DIALYSIS
  12. BAYASPIRIN [Concomitant]
     Active Substance: ASPIRIN
     Route: 048
  13. NITROPEN [Concomitant]
     Active Substance: NITROGLYCERIN
     Route: 048
  14. NESP [Concomitant]
     Active Substance: DARBEPOETIN ALFA
  15. ARTIST [Concomitant]
     Active Substance: CARVEDILOL
     Route: 048
  16. CALCIUM CARBONATE. [Concomitant]
     Active Substance: CALCIUM CARBONATE
     Indication: HYPERPHOSPHATAEMIA
     Route: 048
  17. PALUX [Concomitant]
     Active Substance: ALPROSTADIL

REACTIONS (2)
  - Diarrhoea [Recovered/Resolved]
  - Faeces soft [Recovered/Resolved]

NARRATIVE: CASE EVENT DATE: 20160629
